FAERS Safety Report 12324018 (Version 1)
Quarter: 2016Q2

REPORT INFORMATION
  Report Type: Spontaneous
  Country: US (occurrence: US)
  Receive Date: 20160502
  Receipt Date: 20160502
  Transmission Date: 20160815
  Serious: No
  Sender: FDA-Public Use
  Company Number: US-ABBVIE-15P-163-1396527-00

PATIENT
  Sex: Male

DRUGS (4)
  1. ANDROGEL [Suspect]
     Active Substance: TESTOSTERONE
     Indication: ENERGY INCREASED
     Route: 061
  2. ANDROGEL [Suspect]
     Active Substance: TESTOSTERONE
     Indication: ENERGY INCREASED
  3. ANDROGEL [Suspect]
     Active Substance: TESTOSTERONE
     Indication: LIBIDO DISORDER
  4. ANDROGEL [Suspect]
     Active Substance: TESTOSTERONE
     Indication: HYPOGONADISM

REACTIONS (2)
  - Loss of libido [Not Recovered/Not Resolved]
  - Drug ineffective [Not Recovered/Not Resolved]
